FAERS Safety Report 5135237-X (Version None)
Quarter: 2006Q4

REPORT INFORMATION
  Report Type: 
  Country: None (occurrence: None)
  Receive Date: 20061024
  Receipt Date: 20061024
  Transmission Date: 20070319
  Serious: Yes (Other)
  Sender: FDA-Public Use
  Company Number: None

PATIENT
  Age: 58 Year
  Sex: Male
  Weight: 77.1115 kg

DRUGS (1)
  1. TOBRADEX [Suspect]
     Dosage: 1 DROP INTO EACH EYE FOUR TIMES DAILY OPHTHALMIC
     Route: 047

REACTIONS (2)
  - DRY MOUTH [None]
  - DYSGEUSIA [None]
